FAERS Safety Report 8327112-4 (Version None)
Quarter: 2012Q2

REPORT INFORMATION
  Report Type: 
  Country: None (occurrence: None)
  Receive Date: 20120501
  Receipt Date: 20120320
  Transmission Date: 20120825
  Serious: Yes (Hospitalization)
  Sender: FDA-Public Use
  Company Number: US-SANOFI-AVENTIS-2012SA019548

PATIENT

DRUGS (2)
  1. APIDRA [Suspect]
     Route: 058
     Dates: start: 20111201
  2. SOLOSTAR [Suspect]
     Route: 058
     Dates: start: 20111201

REACTIONS (2)
  - PRODUCT QUALITY ISSUE [None]
  - DIABETES MELLITUS INADEQUATE CONTROL [None]
